FAERS Safety Report 8117671-9 (Version None)
Quarter: 2012Q1

REPORT INFORMATION
  Report Type: 
  Country: None (occurrence: None)
  Receive Date: 20120203
  Receipt Date: 20120203
  Transmission Date: 20120608
  Serious: Yes (Hospitalization)
  Sender: FDA-Public Use
  Company Number: None

PATIENT
  Age: 55 Year
  Sex: Male
  Weight: 105.9603 kg

DRUGS (11)
  1. SORAFENIB 200MG [Suspect]
     Dosage: 200 MG BID
     Dates: start: 20110814, end: 20120113
  2. COMPAZINE [Concomitant]
  3. MAGNESIUM OXIDE [Concomitant]
  4. SYNTHROID [Concomitant]
  5. TMP/SMX SS [Concomitant]
  6. ACYCLOVIR [Concomitant]
  7. LASIX [Concomitant]
  8. MULTIVITAMIN THERAPEUTIC [Concomitant]
  9. CHLORHEXIDINE MOUTHWASH [Concomitant]
  10. NORVASC [Concomitant]
  11. FOLIC ACID [Concomitant]

REACTIONS (4)
  - WEIGHT INCREASED [None]
  - NEPHROTIC SYNDROME [None]
  - FATIGUE [None]
  - RENAL FAILURE [None]
